FAERS Safety Report 14700937 (Version 3)
Quarter: 2019Q2

REPORT INFORMATION
  Report Type: Spontaneous
  Country: US (occurrence: US)
  Receive Date: 20180330
  Receipt Date: 20190430
  Transmission Date: 20190711
  Serious: Yes (Disabling, Other)
  Sender: FDA-Public Use
  Company Number: US-PFIZER INC-2018130012

PATIENT
  Sex: Male
  Weight: 3.32 kg

DRUGS (1)
  1. PROCARDIA [Suspect]
     Active Substance: NIFEDIPINE
     Dosage: UNK
     Route: 064
     Dates: start: 2011, end: 201206

REACTIONS (8)
  - Ear infection [Unknown]
  - Speech disorder [Unknown]
  - Maternal exposure during pregnancy [Unknown]
  - Hypoacusis [Unknown]
  - Learning disorder [Unknown]
  - Premature baby [Unknown]
  - Cleft palate [Unknown]
  - Gastrooesophageal reflux disease [Unknown]

NARRATIVE: CASE EVENT DATE: 2012
